FAERS Safety Report 24079958 (Version 2)
Quarter: 2024Q3

REPORT INFORMATION
  Report Type: Report from Study
  Country: US (occurrence: US)
  Receive Date: 20240711
  Receipt Date: 20240718
  Transmission Date: 20241016
  Serious: Yes (Other)
  Sender: ABBVIE
  Company Number: US-ABBVIE-5833303

PATIENT
  Sex: Female
  Weight: 68 kg

DRUGS (1)
  1. CREON [Suspect]
     Active Substance: PANCRELIPASE AMYLASE\PANCRELIPASE LIPASE\PANCRELIPASE PROTEASE
     Indication: Pancreatic failure
     Dosage: 1 CAPSULE BEFORE MEAL
     Route: 048
     Dates: start: 20180901

REACTIONS (6)
  - Scar [Not Recovered/Not Resolved]
  - Cataract [Recovering/Resolving]
  - Herpes zoster [Not Recovered/Not Resolved]
  - Cataract operation complication [Recovering/Resolving]
  - Surgical failure [Unknown]
  - Keratorhexis [Recovering/Resolving]

NARRATIVE: CASE EVENT DATE: 20190101
